FAERS Safety Report 7888113-3 (Version None)
Quarter: 2011Q4

REPORT INFORMATION
  Report Type: 
  Country: None (occurrence: None)
  Receive Date: 20111103
  Receipt Date: 20111026
  Transmission Date: 20120403
  Serious: Yes (Other)
  Sender: FDA-Public Use
  Company Number: AR-AMGEN-ARGSP2011054749

PATIENT
  Age: 50 Year
  Sex: Female
  Weight: 72 kg

DRUGS (4)
  1. FOLIC ACID [Concomitant]
     Dosage: UNK
     Route: 048
  2. ENBREL [Suspect]
     Indication: RHEUMATOID ARTHRITIS
     Dosage: 50 MG, WEEKLY
     Route: 058
     Dates: start: 20101112, end: 20110901
  3. ENBREL [Suspect]
     Dosage: 50 MG, WEEKLY
     Route: 058
     Dates: start: 20111025
  4. METHOTREXATE [Concomitant]
     Dosage: UNK
     Route: 048

REACTIONS (1)
  - CHONDROPATHY [None]
